FAERS Safety Report 4344462-7 (Version None)
Quarter: 2004Q2

REPORT INFORMATION
  Report Type: 
  Country: None (occurrence: None)
  Receive Date: 20040422
  Receipt Date: 20040224
  Transmission Date: 20050107
  Serious: Yes (Other)
  Sender: FDA-Public Use
  Company Number: PHFR2004GB01184

PATIENT
  Age: 27 Year
  Sex: Male

DRUGS (3)
  1. CLOZARIL [Suspect]
     Indication: SCHIZOPHRENIA
     Dosage: 50MG MANE 175MG NOCTE
     Route: 048
     Dates: start: 20031029
  2. CLOZARIL [Suspect]
     Dosage: 500MG MANE MEDICATION ERROR
     Route: 048
     Dates: start: 20040224
  3. HYOSCINE [Concomitant]
     Dosage: 300UG NOCTE
     Route: 048

REACTIONS (5)
  - ACCIDENTAL OVERDOSE [None]
  - HAEMOGLOBIN DECREASED [None]
  - HYPOTENSION [None]
  - MEDICATION ERROR [None]
  - SOMNOLENCE [None]
